FAERS Safety Report 4896348-7 (Version None)
Quarter: 2006Q1

REPORT INFORMATION
  Report Type: 
  Country: None (occurrence: None)
  Receive Date: 20060126
  Receipt Date: 20060110
  Transmission Date: 20060701
  Serious: Yes (Death)
  Sender: FDA-Public Use
  Company Number: 200601IM000086

PATIENT
  Sex: Male

DRUGS (3)
  1. INTERFERON GAMMA-1B [Suspect]
     Indication: MYCOBACTERIAL INFECTION
  2. MULTIPLE ANTIBIOTICS [Suspect]
     Indication: MYCOBACTERIAL INFECTION
  3. IMMUNOGLOBULIN [Suspect]
     Indication: MYCOBACTERIAL INFECTION
     Dosage: INTRAVENOUS
     Route: 042

REACTIONS (2)
  - CONDITION AGGRAVATED [None]
  - MYCOBACTERIAL INFECTION [None]
